FAERS Safety Report 17522351 (Version 5)
Quarter: 2020Q4

REPORT INFORMATION
  Report Type: Spontaneous
  Country: US (occurrence: US)
  Receive Date: 20200310
  Receipt Date: 20201008
  Transmission Date: 20210113
  Serious: Yes (Other)
  Sender: FDA-Public Use
  Company Number: US-PFIZER INC-2020104754

PATIENT
  Age: 58 Year
  Sex: Female

DRUGS (1)
  1. XELJANZ [Suspect]
     Active Substance: TOFACITINIB CITRATE
     Indication: RHEUMATOID ARTHRITIS
     Dosage: 5 MG, 2X/DAY
     Route: 048
     Dates: start: 201906, end: 202009

REACTIONS (8)
  - Diabetes mellitus [Unknown]
  - Blood triglycerides increased [Unknown]
  - Pain in extremity [Not Recovered/Not Resolved]
  - Blood creatinine increased [Unknown]
  - Inflammation [Unknown]
  - Blood cholesterol decreased [Unknown]
  - Renal disorder [Unknown]
  - Fatigue [Unknown]
